FAERS Safety Report 9677790 (Version 1)
Quarter: 2013Q4

REPORT INFORMATION
  Report Type: Spontaneous
  Country: US (occurrence: None)
  Receive Date: 20131107
  Receipt Date: 20131107
  Transmission Date: 20140711
  Serious: Yes (Disabling)
  Sender: FDA-Public Use
  Company Number: None

PATIENT
  Age: 56 Year
  Sex: Female
  Weight: 86.64 kg

DRUGS (2)
  1. SIMVASTATIN [Suspect]
     Dosage: 1 PILL
     Route: 048
     Dates: start: 20110221, end: 20130222
  2. L-THYROXINE [Concomitant]

REACTIONS (10)
  - Abdominal pain upper [None]
  - Constipation [None]
  - Myalgia [None]
  - Tenderness [None]
  - Vision blurred [None]
  - Pruritus [None]
  - Diabetes mellitus [None]
  - Haematochezia [None]
  - Chromaturia [None]
  - Nail disorder [None]
